FAERS Safety Report 7528438-4 (Version None)
Quarter: 2011Q2

REPORT INFORMATION
  Report Type: 
  Country: None (occurrence: None)
  Receive Date: 20110607
  Receipt Date: 20101214
  Transmission Date: 20111010
  Serious: No
  Sender: FDA-Public Use
  Company Number: US-ASTRAZENECA-2011SE01062

PATIENT
  Sex: Male

DRUGS (5)
  1. ZOCOR [Concomitant]
  2. PRILOSEC OTC [Suspect]
     Route: 048
     Dates: start: 20100901
  3. CREON [Concomitant]
     Indication: GASTRIC DISORDER
  4. ASPIRIN [Concomitant]
  5. WELLBUTRIN [Concomitant]

REACTIONS (3)
  - ERUCTATION [None]
  - INAPPROPRIATE SCHEDULE OF DRUG ADMINISTRATION [None]
  - INCORRECT DRUG ADMINISTRATION DURATION [None]
